FAERS Safety Report 26025666 (Version 1)
Quarter: 2025Q4

REPORT INFORMATION
  Report Type: Spontaneous
  Country: GB (occurrence: GB)
  Receive Date: 20251111
  Receipt Date: 20251111
  Transmission Date: 20260117
  Serious: Yes (Other)
  Sender: SANDOZ
  Company Number: None

PATIENT
  Age: 20 Year
  Sex: Female
  Weight: 86 kg

DRUGS (3)
  1. CLARITHROMYCIN [Suspect]
     Active Substance: CLARITHROMYCIN
     Indication: Pertussis
     Dosage: 500 MG TWICE A DAY
     Route: 065
     Dates: start: 20251106
  2. ORTHO EVRA [Concomitant]
     Active Substance: ETHINYL ESTRADIOL\NORELGESTROMIN
     Indication: Contraception
     Dosage: UNK
     Route: 065
     Dates: start: 20250325
  3. SERTRALINE [Concomitant]
     Active Substance: SERTRALINE HYDROCHLORIDE
     Indication: Anxiety disorder
     Dosage: UNK
     Route: 065
     Dates: start: 20231201

REACTIONS (9)
  - Sleep terror [Not Recovered/Not Resolved]
  - Sleep talking [Not Recovered/Not Resolved]
  - Dry mouth [Not Recovered/Not Resolved]
  - Hallucination [Not Recovered/Not Resolved]
  - Diarrhoea [Not Recovered/Not Resolved]
  - Anxiety [Not Recovered/Not Resolved]
  - Anxiety [Not Recovered/Not Resolved]
  - Nausea [Not Recovered/Not Resolved]
  - Vomiting [Recovering/Resolving]

NARRATIVE: CASE EVENT DATE: 20251106
